FAERS Safety Report 5754219-8 (Version None)
Quarter: 2008Q2

REPORT INFORMATION
  Report Type: 
  Country: None (occurrence: None)
  Receive Date: 20080530
  Receipt Date: 20080528
  Transmission Date: 20081010
  Serious: Yes (Other)
  Sender: FDA-Public Use
  Company Number: CN-JNJFOC-20080505571

PATIENT
  Age: 33 Month
  Sex: Male

DRUGS (1)
  1. ANTUSS INFANTS' DECONGESTANT + COUGH [Suspect]
     Indication: ACCIDENTAL EXPOSURE
     Route: 048

REACTIONS (2)
  - ACCIDENTAL DRUG INTAKE BY CHILD [None]
  - ACCIDENTAL OVERDOSE [None]
